FAERS Safety Report 15459381 (Version 1)
Quarter: 2018Q4

REPORT INFORMATION
  Report Type: Spontaneous
  Country: CH (occurrence: CH)
  Receive Date: 20181003
  Receipt Date: 20181003
  Transmission Date: 20190204
  Serious: Yes (Congenital Anomaly)
  Sender: FDA-Public Use
  Company Number: CH-ASTRAZENECA-2018SF24634

PATIENT
  Age: 0 Day
  Sex: Male
  Weight: 3.4 kg

DRUGS (5)
  1. CLOPIXOL ACUPHASE [Concomitant]
     Active Substance: ZUCLOPENTHIXOL ACETATE
     Dosage: 75.0MG UNKNOWN
     Route: 064
     Dates: end: 201801
  2. AKINETON [Concomitant]
     Active Substance: BIPERIDEN HYDROCHLORIDE
     Dosage: 2.0MG UNKNOWN
     Route: 064
     Dates: end: 201801
  3. SEROQUEL [Suspect]
     Active Substance: QUETIAPINE FUMARATE
     Indication: SCHIZOTYPAL PERSONALITY DISORDER
     Dosage: 400.0MG UNKNOWN
     Route: 064
     Dates: start: 20180606
  4. TEMESTA (LORAZEPAM) [Suspect]
     Active Substance: LORAZEPAM
     Dosage: 2.5MG UNKNOWN
     Route: 064
  5. REMERON RD [Concomitant]
     Active Substance: MIRTAZAPINE
     Dosage: 15.0MG UNKNOWN
     Route: 064
     Dates: end: 201801

REACTIONS (4)
  - Neonatal respiratory distress syndrome [Recovered/Resolved]
  - Pneumothorax [Recovered/Resolved]
  - Bradycardia foetal [Recovered/Resolved]
  - Exposure during pregnancy [Recovered/Resolved]

NARRATIVE: CASE EVENT DATE: 20180813
